FAERS Safety Report 4352246-9 (Version None)
Quarter: 2004Q2

REPORT INFORMATION
  Report Type: 
  Country: None (occurrence: None)
  Receive Date: 20040503
  Receipt Date: 20040414
  Transmission Date: 20050107
  Serious: Yes (Hospitalization)
  Sender: FDA-Public Use
  Company Number: UK067600

PATIENT
  Age: 32 Year
  Sex: Male

DRUGS (1)
  1. NEUPOGEN [Suspect]
     Indication: BLOOD STEM CELL HARVEST
     Dosage: 480 MCG, SC
     Route: 058
     Dates: start: 20040207, end: 20040211

REACTIONS (12)
  - APHERESIS [None]
  - CONDITION AGGRAVATED [None]
  - DEMYELINATION [None]
  - FACIAL PALSY [None]
  - FATIGUE [None]
  - HYPERHIDROSIS [None]
  - INFLUENZA LIKE ILLNESS [None]
  - MULTIPLE SCLEROSIS [None]
  - PAIN [None]
  - PARAESTHESIA [None]
  - PLATELET COUNT DECREASED [None]
  - SPLENOMEGALY [None]
